FAERS Safety Report 9127936 (Version 1)
Quarter: 2013Q1

REPORT INFORMATION
  Report Type: Spontaneous
  Country: US (occurrence: US)
  Receive Date: 20130228
  Receipt Date: 20130228
  Transmission Date: 20140127
  Serious: No
  Sender: FDA-Public Use
  Company Number: US-B.I. PHARMACEUTICALS,INC./RIDGEFIELD-2013-BI-04515BP

PATIENT
  Age: 62 None
  Sex: Female
  Weight: 91 kg

DRUGS (10)
  1. SPIRIVA [Suspect]
     Indication: CHRONIC OBSTRUCTIVE PULMONARY DISEASE
     Dosage: 18 MCG
     Route: 055
     Dates: start: 20130112
  2. MOBIC [Suspect]
     Indication: OSTEOARTHRITIS
     Route: 048
     Dates: start: 2007, end: 2007
  3. TOPROL XL [Concomitant]
     Indication: HYPERTENSION
     Dosage: 25 MG
     Route: 048
  4. ZESTRIL [Concomitant]
     Dosage: 20 MG
     Route: 048
  5. RANITIDINE [Concomitant]
     Indication: REFLUX GASTRITIS
     Dosage: 300 MG
     Route: 048
  6. ZOCOR [Concomitant]
     Indication: BLOOD CHOLESTEROL INCREASED
     Dosage: 40 MG
     Route: 048
  7. ZYRTEC [Concomitant]
     Dosage: 10 MG
     Route: 048
  8. NEURONTIN [Concomitant]
     Indication: TREMOR
     Dosage: 900 MG
     Route: 048
  9. ARICEPT [Concomitant]
     Indication: DEMENTIA
     Dosage: 10 MG
     Route: 048
  10. MYSOLINE [Concomitant]
     Indication: TREMOR
     Dosage: 150 MG
     Route: 048

REACTIONS (5)
  - Renal disorder [Not Recovered/Not Resolved]
  - Local swelling [Not Recovered/Not Resolved]
  - Joint swelling [Not Recovered/Not Resolved]
  - Dry mouth [Not Recovered/Not Resolved]
  - Throat irritation [Not Recovered/Not Resolved]
